FAERS Safety Report 10060163 (Version 2)
Quarter: 2015Q3

REPORT INFORMATION
  Report Type: Spontaneous
  Country: GB (occurrence: GB)
  Receive Date: 20140404
  Receipt Date: 20150922
  Transmission Date: 20151125
  Serious: Yes (Life-Threatening, Hospitalization)
  Sender: FDA-Public Use
  Company Number: PHHY2014GB037192

PATIENT
  Age: 67 Year
  Sex: Male

DRUGS (4)
  1. ROPINIROLE. [Suspect]
     Active Substance: ROPINIROLE
     Indication: PARKINSON^S DISEASE
     Dosage: 4 MG, QD
  2. LEVODOPA+CARBIDOPA [Suspect]
     Active Substance: CARBIDOPA\LEVODOPA
     Indication: PARKINSON^S DISEASE
  3. SELEGILINE [Suspect]
     Active Substance: SELEGILINE
     Indication: PARKINSON^S DISEASE
     Dosage: 10 MG, QD
  4. TRIMETHOPRIM. [Concomitant]
     Active Substance: TRIMETHOPRIM
     Indication: URINARY TRACT INFECTION

REACTIONS (21)
  - Tremor [Recovering/Resolving]
  - Tachypnoea [Recovering/Resolving]
  - Body temperature increased [Recovering/Resolving]
  - Hallucination, visual [Unknown]
  - Orthostatic hypotension [Recovering/Resolving]
  - Hyperhidrosis [Recovering/Resolving]
  - Circulatory collapse [Recovering/Resolving]
  - Withdrawal syndrome [Unknown]
  - Confusional state [Recovering/Resolving]
  - Tachycardia [Recovering/Resolving]
  - Muscle rigidity [Recovering/Resolving]
  - Parkinsonism hyperpyrexia syndrome [Recovering/Resolving]
  - Hallucination [Recovering/Resolving]
  - Nitrite urine present [Recovering/Resolving]
  - Blood urine present [Recovering/Resolving]
  - Dopamine dysregulation syndrome [Unknown]
  - Agitation [Unknown]
  - Dyskinesia [Recovering/Resolving]
  - Musculoskeletal stiffness [Recovering/Resolving]
  - Blood creatine phosphokinase increased [Recovering/Resolving]
  - Hallucination, auditory [Unknown]
